FAERS Safety Report 24351898 (Version 1)
Quarter: 2024Q3

REPORT INFORMATION
  Report Type: Spontaneous
  Country: FR (occurrence: FR)
  Receive Date: 20240923
  Receipt Date: 20240923
  Transmission Date: 20241016
  Serious: Yes (Other)
  Sender: CHEPLAPHARM
  Company Number: None

PATIENT
  Age: 21 Year
  Sex: Male

DRUGS (8)
  1. CLONAZEPAM [Suspect]
     Active Substance: CLONAZEPAM
     Dosage: 2.5CP
  2. LYRICA [Suspect]
     Active Substance: PREGABALIN
  3. CANNABIS SATIVA SUBSP. INDICA TOP [Suspect]
     Active Substance: CANNABIS SATIVA SUBSP. INDICA TOP
  4. LEVAMISOLE [Suspect]
     Active Substance: LEVAMISOLE
  5. COCAINE [Suspect]
     Active Substance: COCAINE
  6. ALCOHOL [Suspect]
     Active Substance: ALCOHOL
  7. TRAMADOL [Suspect]
     Active Substance: TRAMADOL\TRAMADOL HYDROCHLORIDE
  8. COCAETHYLENE [Suspect]
     Active Substance: COCAETHYLENE

REACTIONS (5)
  - Chest pain [Recovered/Resolved]
  - Tachycardia [Unknown]
  - Asthenia [Recovered/Resolved]
  - Drug use disorder [Unknown]
  - Pain [Unknown]

NARRATIVE: CASE EVENT DATE: 20240519
